FAERS Safety Report 4343107-X (Version None)
Quarter: 2004Q2

REPORT INFORMATION
  Report Type: 
  Country: None (occurrence: None)
  Receive Date: 20040421
  Receipt Date: 20040407
  Transmission Date: 20050107
  Serious: Yes (Hospitalization, Other)
  Sender: FDA-Public Use
  Company Number: US-GLAXOSMITHKLINE-A0506371A

PATIENT
  Age: 52 Year
  Sex: Female
  Weight: 87.3 kg

DRUGS (2)
  1. WELLBUTRIN [Suspect]
     Indication: ILL-DEFINED DISORDER
     Dosage: 300MG PER DAY
     Route: 048
     Dates: start: 20040308, end: 20040402
  2. GABITRIL [Concomitant]

REACTIONS (2)
  - CONVULSION [None]
  - MEDICATION ERROR [None]
